FAERS Safety Report 6133792-4 (Version None)
Quarter: 2009Q1

REPORT INFORMATION
  Report Type: 
  Country: None (occurrence: None)
  Receive Date: 20090324
  Receipt Date: 20090313
  Transmission Date: 20090719
  Serious: Yes (Death)
  Sender: FDA-Public Use
  Company Number: 1000004997

PATIENT
  Age: 86 Year
  Sex: Male
  Weight: 55.8 kg

DRUGS (11)
  1. NEBIVOLOL (NEBIVOLOL HYDROCHT,ORIDE)(TABLETS) [Suspect]
     Indication: IRON DEFICIENCY ANAEMIA
     Dosage: 5  MG (5MG, 1 IN 1 D), ORAL
     Route: 048
     Dates: start: 20081119, end: 20081120
  2. FERINJECT [Suspect]
     Dosage: 500 MG (500 MG,1 IN 1 D), INTRAVENOUS (NOT OTHERWISE SPECIFIED)
     Route: 042
     Dates: start: 20081119, end: 20081119
  3. FRAGMIN [Suspect]
     Indication: THROMBOSIS PROPHYLAXIS
     Dosage: 5000 IU/0.2 ML (1 DOSAGE FORMS, 1 IN 1 D), SUBCUTANEOUS
     Route: 058
     Dates: start: 20081118, end: 20081120
  4. ASPIRIN [Suspect]
     Dosage: 100 MG (100 MG,1 IN 1 D), ORAL
     Route: 048
     Dates: start: 20081119, end: 20081120
  5. LASIX [Suspect]
     Dosage: 20 MG/2ML X2 DF/D (2 DOSAGE FORMS,1 IN 1 D), INTRAVENOUS BOLUS
     Route: 040
     Dates: start: 20081118, end: 20081119
  6. DIOVAN [Suspect]
     Dosage: 80 MG (80 MG, 1 IN 1 D), ORAL ; 40 MG (40 MG, 1 IN 1 D), ORAL; 10 MG (10 MG, 1  D), ORAL
     Route: 048
     Dates: end: 20081008
  7. DIOVAN [Suspect]
     Dosage: 80 MG (80 MG, 1 IN 1 D), ORAL ; 40 MG (40 MG, 1 IN 1 D), ORAL; 10 MG (10 MG, 1  D), ORAL
     Route: 048
     Dates: start: 20081008, end: 20081014
  8. DIOVAN [Suspect]
     Dosage: 80 MG (80 MG, 1 IN 1 D), ORAL ; 40 MG (40 MG, 1 IN 1 D), ORAL; 10 MG (10 MG, 1  D), ORAL
     Route: 048
     Dates: start: 20081014
  9. VENOFER [Suspect]
     Dosage: 100 MG (100 MG,ONCE), INTRAVENOUS (NOT OTHERWISE SPECIFIED)
     Route: 042
  10. RECORMON (EPOETIN BETA) [Concomitant]
  11. LORAZEPAM [Concomitant]

REACTIONS (21)
  - ACUTE HEPATIC FAILURE [None]
  - ARTERIOSCLEROSIS [None]
  - ARTERIOSCLEROSIS CORONARY ARTERY [None]
  - BRONCHOPNEUMONIA [None]
  - CARDIAC FAILURE ACUTE [None]
  - EMBOLISM [None]
  - EMPHYSEMA [None]
  - HEPATIC CONGESTION [None]
  - HEPATIC ENCEPHALOPATHY [None]
  - HEPATIC FIBROSIS [None]
  - HEPATIC NECROSIS [None]
  - HEPATIC SIDEROSIS [None]
  - HEPATOTOXICITY [None]
  - INTERSTITIAL LUNG DISEASE [None]
  - MYOCARDIAL FIBROSIS [None]
  - PROSTATE CANCER [None]
  - PULMONARY CONGESTION [None]
  - PULMONARY FIBROSIS [None]
  - SCAR [None]
  - SPLEEN CONGESTION [None]
  - VENTRICULAR HYPERTROPHY [None]
